FAERS Safety Report 24284120 (Version 2)
Quarter: 2024Q3

REPORT INFORMATION
  Report Type: Spontaneous
  Country: IT (occurrence: IT)
  Receive Date: 20240905
  Receipt Date: 20240920
  Transmission Date: 20241016
  Serious: Yes (Life-Threatening, Hospitalization, Other)
  Sender: TEVA
  Company Number: IT-TEVA-VS-3238723

PATIENT

DRUGS (6)
  1. CISPLATIN [Suspect]
     Active Substance: CISPLATIN
     Indication: Thymoma
     Dosage: ON DAY 1; RECEIVED 1 CYCLE
     Route: 065
     Dates: start: 201408, end: 201408
  2. DOXORUBICIN [Suspect]
     Active Substance: DOXORUBICIN
     Indication: Thymoma
     Dosage: ON DAY 1; RECEIVED 1 CYCLE
     Route: 065
     Dates: start: 201408, end: 201408
  3. CYCLOPHOSPHAMIDE [Suspect]
     Active Substance: CYCLOPHOSPHAMIDE
     Indication: Thymoma
     Dosage: ON DAY 1; RECEIVED 1 CYCLE
     Route: 065
     Dates: start: 201408, end: 201408
  4. GEMCITABINE [Suspect]
     Active Substance: GEMCITABINE
     Indication: Thymoma
     Dosage: RECEIVED 5 CYCLES; ON DAYS 1 AND DAYS 8 EVERY 21 DAYS
     Route: 065
     Dates: start: 201708, end: 201711
  5. CARBOPLATIN [Suspect]
     Active Substance: CARBOPLATIN
     Indication: Thymoma
     Dosage: RECEIVED 5 CYCLES; AUC 5 ON DAY 1, EVERY 21 DAYS
     Route: 065
     Dates: start: 201708, end: 201711
  6. NIVOLUMAB [Suspect]
     Active Substance: NIVOLUMAB
     Indication: Thymoma
     Dosage: RECEIVED 2 CYCLES
     Route: 065
     Dates: start: 201711, end: 201711

REACTIONS (7)
  - Anaphylactic reaction [Unknown]
  - Atrial fibrillation [Unknown]
  - Cardiac failure [Unknown]
  - Dyspnoea [Unknown]
  - Drug ineffective [Unknown]
  - Myocarditis [Recovered/Resolved]
  - Off label use [Unknown]

NARRATIVE: CASE EVENT DATE: 20140801
